FAERS Safety Report 5923148-9 (Version None)
Quarter: 2008Q4

REPORT INFORMATION
  Report Type: 
  Country: None (occurrence: None)
  Receive Date: 20081020
  Receipt Date: 20081008
  Transmission Date: 20090506
  Serious: Yes (Death)
  Sender: FDA-Public Use
  Company Number: CZ-JNJFOC-20080902157

PATIENT

DRUGS (1)
  1. REMICADE [Suspect]
     Indication: DRUG EXPOSURE BEFORE PREGNANCY
     Route: 050

REACTIONS (1)
  - STILLBIRTH [None]
